FAERS Safety Report 5006961-4 (Version None)
Quarter: 2006Q2

REPORT INFORMATION
  Report Type: 
  Country: None (occurrence: None)
  Receive Date: 20060516
  Receipt Date: 20060502
  Transmission Date: 20061013
  Serious: Yes (Hospitalization)
  Sender: FDA-Public Use
  Company Number: 2006-142181-NL

PATIENT
  Age: 80 Year
  Sex: Male

DRUGS (3)
  1. MIRTAZAPINE [Suspect]
     Indication: ANTIDEPRESSANT THERAPY
     Dosage: 15 MG QD ORAL
     Route: 048
     Dates: start: 20060201, end: 20060301
  2. ANTIDEPRESSANTS [Concomitant]
  3. ANTIHYPERTENSIVES [Concomitant]

REACTIONS (3)
  - BLOOD PRESSURE INCREASED [None]
  - NIGHTMARE [None]
  - TREMOR [None]
